FAERS Safety Report 7469587-9 (Version None)
Quarter: 2011Q2

REPORT INFORMATION
  Report Type: 
  Country: None (occurrence: None)
  Receive Date: 20110510
  Receipt Date: 20110503
  Transmission Date: 20111010
  Serious: Yes (Other)
  Sender: FDA-Public Use
  Company Number: PHHY2011US32183

PATIENT

DRUGS (2)
  1. TASIGNA [Suspect]
     Dosage: 200 MG, BID
     Route: 048
  2. AVELOX [Interacting]
     Dosage: 400 MG, QD

REACTIONS (2)
  - DRUG INTERACTION [None]
  - MASTITIS [None]
